FAERS Safety Report 5472054-5 (Version None)
Quarter: 2007Q3

REPORT INFORMATION
  Report Type: 
  Country: None (occurrence: None)
  Receive Date: 20070928
  Receipt Date: 20070918
  Transmission Date: 20080115
  Serious: Yes (Other)
  Sender: FDA-Public Use
  Company Number: GB-PFIZER INC-2007078479

PATIENT
  Age: 35 Year

DRUGS (1)
  1. VARENICLINE TABLETS [Suspect]
     Route: 048
     Dates: start: 20070307, end: 20070616

REACTIONS (5)
  - DEPRESSED MOOD [None]
  - DRUG WITHDRAWAL SYNDROME [None]
  - INSOMNIA [None]
  - IRRITABILITY [None]
  - TEARFULNESS [None]
